FAERS Safety Report 4505383-X (Version None)
Quarter: 2004Q4

REPORT INFORMATION
  Report Type: 
  Country: None (occurrence: None)
  Receive Date: 20041119
  Receipt Date: 20041111
  Transmission Date: 20050328
  Serious: Yes (Hospitalization)
  Sender: FDA-Public Use
  Company Number: DE-NOVOPROD-240449

PATIENT
  Age: 54 Year
  Sex: Female

DRUGS (3)
  1. ACTIVELLE [Suspect]
     Indication: ILL-DEFINED DISORDER
     Route: 048
     Dates: start: 20040801
  2. BELOC ZOK [Concomitant]
     Indication: HYPERTENSION
     Route: 048
  3. INSIDON ^CIBA-GEIGY^ [Concomitant]
     Route: 048

REACTIONS (12)
  - ANGINA UNSTABLE [None]
  - AORTIC VALVE INCOMPETENCE [None]
  - ARRHYTHMIA [None]
  - ASTHENIA [None]
  - CORONARY ARTERY STENOSIS [None]
  - DYSPNOEA [None]
  - MYOCARDIAL INFARCTION [None]
  - PAIN IN EXTREMITY [None]
  - PERICARDIAL EFFUSION [None]
  - SENSATION OF PRESSURE [None]
  - VENTRICULAR FIBRILLATION [None]
  - VENTRICULAR HYPOKINESIA [None]
